FAERS Safety Report 10963527 (Version 1)
Quarter: 2015Q1

REPORT INFORMATION
  Report Type: Spontaneous
  Country: GB (occurrence: None)
  Receive Date: 20150326
  Receipt Date: 20150326
  Transmission Date: 20150721
  Serious: Yes (Other)
  Sender: FDA-Public Use
  Company Number: GB-H14001-15-00453

PATIENT
  Age: 33 Year
  Sex: Male

DRUGS (1)
  1. CO-AMOXICLAV (AUGMENTIN/00756801) [Suspect]
     Active Substance: AMOXICILLIN\CLAVULANATE POTASSIUM
     Indication: LOWER RESPIRATORY TRACT INFECTION
     Dosage: 3 DOSAGE FORMS (1 DOSAGE FORMS,3 IN 1 D)
     Route: 048
     Dates: start: 20150226, end: 20150304

REACTIONS (3)
  - Insomnia [None]
  - Nausea [None]
  - Peripheral swelling [None]

NARRATIVE: CASE EVENT DATE: 20150226
